FAERS Safety Report 7971065-5 (Version None)
Quarter: 2011Q4

REPORT INFORMATION
  Report Type: 
  Country: None (occurrence: None)
  Receive Date: 20111212
  Receipt Date: 20111202
  Transmission Date: 20120403
  Serious: Yes (Other)
  Sender: FDA-Public Use
  Company Number: US-ASTRAZENECA-2009UW03397

PATIENT
  Age: 88 Year
  Sex: Female

DRUGS (10)
  1. OXYCODONE HCL [Concomitant]
  2. LUMIGAN [Concomitant]
  3. CALCIUM CARBONATE [Concomitant]
  4. TRUSOPT [Concomitant]
  5. MYLANTA [Concomitant]
  6. PREVACID [Concomitant]
  7. ASPIRIN [Concomitant]
  8. LEVOBUNOLOL HCL [Concomitant]
  9. NEXIUM [Suspect]
     Route: 048
     Dates: start: 20080201
  10. HEMAX [Concomitant]

REACTIONS (15)
  - GASTROINTESTINAL ARTERIOVENOUS MALFORMATION [None]
  - GASTRITIS [None]
  - DYSPEPSIA [None]
  - ABDOMINAL PAIN UPPER [None]
  - DRUG DOSE OMISSION [None]
  - APHAGIA [None]
  - HIATUS HERNIA [None]
  - NAUSEA [None]
  - CHRONIC GASTROINTESTINAL BLEEDING [None]
  - AORTIC ARTERIOSCLEROSIS [None]
  - GASTROOESOPHAGEAL REFLUX DISEASE [None]
  - MALAISE [None]
  - OESOPHAGEAL SPASM [None]
  - WRONG DRUG ADMINISTERED [None]
  - DYSPHAGIA [None]
